FAERS Safety Report 15436090 (Version 1)
Quarter: 2018Q3

REPORT INFORMATION
  Report Type: Spontaneous
  Country: GB (occurrence: GB)
  Receive Date: 20180927
  Receipt Date: 20180927
  Transmission Date: 20181010
  Serious: Yes (Other)
  Sender: FDA-Public Use
  Company Number: GB-TEVA-2018-GB-958961

PATIENT
  Age: 76 Year
  Sex: Male
  Weight: 75 kg

DRUGS (3)
  1. OMEPRAZOLE. [Concomitant]
     Active Substance: OMEPRAZOLE
     Dosage: 1 DOSAGE FORMS DAILY;
     Route: 065
     Dates: start: 20180409
  2. PRAVASTATIN. [Suspect]
     Active Substance: PRAVASTATIN
     Route: 065
     Dates: start: 20180830
  3. ATORVASTATIN [Concomitant]
     Active Substance: ATORVASTATIN
     Dosage: 1 DOSAGE FORMS DAILY;
     Route: 065
     Dates: start: 20180119, end: 20180830

REACTIONS (1)
  - Rash papular [Recovered/Resolved]

NARRATIVE: CASE EVENT DATE: 20180830
